FAERS Safety Report 4994517-9 (Version None)
Quarter: 2006Q1

REPORT INFORMATION
  Report Type: 
  Country: None (occurrence: None)
  Receive Date: 20060313
  Receipt Date: 20051209
  Transmission Date: 20060701
  Serious: No
  Sender: FDA-Public Use
  Company Number: 2005-BP-18662BP

PATIENT
  Age: 80 Year
  Sex: Female

DRUGS (4)
  1. SPIRIVA [Suspect]
     Indication: CHRONIC OBSTRUCTIVE PULMONARY DISEASE
     Dosage: 18 MCG (18 MCG),IH
     Dates: start: 20040601
  2. ADVAIR DISKUS 100/50 [Suspect]
     Indication: CHRONIC OBSTRUCTIVE PULMONARY DISEASE
  3. VITAMIN A [Suspect]
     Indication: CHRONIC OBSTRUCTIVE PULMONARY DISEASE
  4. OMEGA 3 (FISH OIL) [Concomitant]

REACTIONS (3)
  - BLISTER [None]
  - MUSCLE SPASMS [None]
  - PAIN IN EXTREMITY [None]
